FAERS Safety Report 22191621 (Version 1)
Quarter: 2023Q2

REPORT INFORMATION
  Report Type: Spontaneous
  Country: US (occurrence: None)
  Receive Date: 20230407
  Receipt Date: 20230407
  Transmission Date: 20230722
  Serious: Yes (Life-Threatening, Hospitalization)
  Sender: FDA-Public Use
  Company Number: None

PATIENT
  Age: 78 Year
  Sex: Female
  Weight: 88 kg

DRUGS (2)
  1. CEFTRIAXONE [Suspect]
     Active Substance: CEFTRIAXONE
     Indication: Pneumonia
     Dosage: OTHER FREQUENCY : EVERY 24 HOURS;?
     Route: 042
     Dates: start: 20230403, end: 20230405
  2. CEFTRIAXONE [Suspect]
     Active Substance: CEFTRIAXONE
     Indication: Urinary tract infection

REACTIONS (7)
  - Lung consolidation [None]
  - Pneumonia [None]
  - Anaphylactic reaction [None]
  - Respiratory failure [None]
  - Skin discolouration [None]
  - Oxygen saturation decreased [None]
  - Nausea [None]

NARRATIVE: CASE EVENT DATE: 20230405
